FAERS Safety Report 4388299-1 (Version None)
Quarter: 2004Q2

REPORT INFORMATION
  Report Type: 
  Country: None (occurrence: None)
  Receive Date: 20040629
  Receipt Date: 20040616
  Transmission Date: 20050107
  Serious: Yes (Hospitalization)
  Sender: FDA-Public Use
  Company Number: 2004UW12513

PATIENT
  Sex: Male

DRUGS (2)
  1. CRESTOR [Suspect]
     Dates: end: 20040501
  2. ZETIA [Concomitant]

REACTIONS (1)
  - CARDIAC FAILURE CONGESTIVE [None]
